FAERS Safety Report 7345475-3 (Version None)
Quarter: 2011Q1

REPORT INFORMATION
  Report Type: 
  Country: None (occurrence: None)
  Receive Date: 20110310
  Receipt Date: 20110209
  Transmission Date: 20110831
  Serious: No
  Sender: FDA-Public Use
  Company Number: US-B.I. PHARMACEUTICALS,INC./RIDGEFIELD-2011-BP-04287BP

PATIENT
  Sex: Female

DRUGS (23)
  1. TEKTURNA [Concomitant]
     Indication: HYPERTENSION
     Route: 048
  2. ISOSORBIDE DINITRATE [Concomitant]
     Route: 048
  3. FUROSEMIDE [Concomitant]
     Indication: FLUID RETENTION
     Dosage: 80 MG
     Route: 048
  4. EPROSARTAN [Concomitant]
     Indication: HYPERTENSION
     Dosage: 600 MG
     Route: 048
  5. ASPIRIN [Concomitant]
     Indication: PROPHYLAXIS
     Dosage: 81 MG
     Route: 048
  6. PRADAXA [Suspect]
     Indication: ATRIAL FIBRILLATION
     Dosage: 300 MG
     Route: 048
     Dates: start: 20110123, end: 20110208
  7. AMLODIPINE [Concomitant]
     Indication: ATRIAL FIBRILLATION
  8. CYMBALTA [Concomitant]
     Indication: DEPRESSION
     Dosage: 60 MG
     Route: 048
  9. TERAZOSIN [Concomitant]
     Indication: HYPERTENSION
     Dosage: 2 MG
     Route: 048
  10. TRIGLIDE [Concomitant]
     Indication: BLOOD TRIGLYCERIDES INCREASED
     Dosage: 160 MG
     Route: 048
  11. LORAZEPAM [Concomitant]
     Indication: ANXIETY
     Dosage: 1 MG
     Route: 048
  12. AMLODIPINE [Concomitant]
     Indication: HYPERTENSION
     Dosage: 10 MG
     Route: 048
  13. METOPROLOL [Concomitant]
     Indication: HYPERTENSION
     Dosage: 100 MG
     Route: 048
  14. GUANFACINE HYDROCHLORIDE [Concomitant]
     Route: 048
  15. TRIGLIDE [Concomitant]
     Indication: BLOOD CHOLESTEROL INCREASED
  16. POTASSIUM CHLORIDE [Concomitant]
     Indication: PROPHYLAXIS
     Dosage: 20 MEQ
     Route: 048
  17. CLONIDINE [Concomitant]
     Indication: HYPERTENSION
     Dosage: 0.3 MG
     Route: 061
  18. CLONIDINE [Concomitant]
     Dosage: 0.1 MG
     Route: 061
  19. CRESTOR [Concomitant]
     Indication: BLOOD CHOLESTEROL INCREASED
     Dosage: 20 MG
     Route: 048
  20. LANSOPRAZOLE [Concomitant]
     Indication: GASTROOESOPHAGEAL REFLUX DISEASE
     Route: 048
  21. RANOLAZINE [Concomitant]
     Route: 048
  22. FISH OIL [Concomitant]
     Indication: PROPHYLAXIS
     Dosage: 600 MG
     Route: 048
  23. METOPROLOL [Concomitant]
     Indication: ATRIAL FIBRILLATION

REACTIONS (3)
  - DYSPEPSIA [None]
  - COUGH [None]
  - GASTROOESOPHAGEAL REFLUX DISEASE [None]
